FAERS Safety Report 9287298 (Version 1)
Quarter: 2013Q2

REPORT INFORMATION
  Report Type: Spontaneous
  Country: US (occurrence: US)
  Receive Date: 20130513
  Receipt Date: 20130513
  Transmission Date: 20140414
  Serious: No
  Sender: FDA-Public Use
  Company Number: US-ASTRAZENECA-2011SE09097

PATIENT
  Age: 53 Year
  Sex: Female

DRUGS (4)
  1. SEROQUEL [Suspect]
     Route: 048
  2. SEROQUEL [Suspect]
     Dosage: TAKING HALF PILL A DAY INSTEAD OF ONE PILL A DAY
     Route: 048
  3. SEROQUEL [Suspect]
     Route: 048
  4. ANTIBIOTICS [Concomitant]

REACTIONS (5)
  - Gait disturbance [Unknown]
  - Limb injury [Unknown]
  - Stress [Unknown]
  - Drug dose omission [Unknown]
  - Intentional drug misuse [Unknown]
